FAERS Safety Report 8110474-0 (Version None)
Quarter: 2012Q1

REPORT INFORMATION
  Report Type: 
  Country: None (occurrence: None)
  Receive Date: 20120202
  Receipt Date: 20120123
  Transmission Date: 20120608
  Serious: Yes (Other)
  Sender: FDA-Public Use
  Company Number: JP-ASTRAZENECA-2012SE06113

PATIENT
  Age: 83 Year
  Sex: Female

DRUGS (1)
  1. MEROPENEM [Suspect]
     Indication: PNEUMONIA
     Route: 042

REACTIONS (4)
  - ASPARTATE AMINOTRANSFERASE INCREASED [None]
  - ALANINE AMINOTRANSFERASE INCREASED [None]
  - BLOOD BILIRUBIN INCREASED [None]
  - AMYLASE INCREASED [None]
